FAERS Safety Report 5348444-8 (Version None)
Quarter: 2007Q2

REPORT INFORMATION
  Report Type: 
  Country: None (occurrence: None)
  Receive Date: 20070606
  Receipt Date: 20070526
  Transmission Date: 20071010
  Serious: Yes (Death, Hospitalization)
  Sender: FDA-Public Use
  Company Number: PH-PFIZER INC-2007041386

PATIENT
  Age: 88 Year
  Sex: Female

DRUGS (2)
  1. NORVASC [Suspect]
     Indication: HYPERTENSION
     Route: 048
     Dates: start: 19800101, end: 20060101
  2. NORVASC [Suspect]
     Route: 048
     Dates: start: 20070101, end: 20070501

REACTIONS (5)
  - CARDIAC ARREST [None]
  - CARDIOMEGALY [None]
  - CHEST PAIN [None]
  - LIVER DISORDER [None]
  - URINARY TRACT INFECTION [None]
